FAERS Safety Report 6972716-4 (Version None)
Quarter: 2010Q3

REPORT INFORMATION
  Report Type: 
  Country: None (occurrence: None)
  Receive Date: 20100909
  Receipt Date: 20091015
  Transmission Date: 20110219
  Serious: No
  Sender: FDA-Public Use
  Company Number: US-KINGPHARMUSA00001-K200901279

PATIENT
  Sex: Female

DRUGS (1)
  1. CYTOMEL [Suspect]
     Dosage: UNK

REACTIONS (5)
  - BREAST TENDERNESS [None]
  - DIARRHOEA [None]
  - MENSTRUATION IRREGULAR [None]
  - MUSCLE SPASMS [None]
  - WEIGHT INCREASED [None]
